FAERS Safety Report 5566352-4 (Version None)
Quarter: 2007Q4

REPORT INFORMATION
  Report Type: 
  Country: None (occurrence: None)
  Receive Date: 20071219
  Receipt Date: 20071210
  Transmission Date: 20080405
  Serious: Yes (Hospitalization)
  Sender: FDA-Public Use
  Company Number: AT-AMGEN-UK254513

PATIENT
  Sex: Male

DRUGS (9)
  1. NEULASTA [Suspect]
     Indication: CHEMOTHERAPY
     Route: 058
     Dates: start: 20071124, end: 20071124
  2. NEXIUM [Concomitant]
     Route: 048
     Dates: start: 20071001
  3. TRAMADOL HCL [Concomitant]
     Route: 048
     Dates: start: 20071001
  4. NOVALGIN [Concomitant]
     Route: 048
     Dates: start: 20071001
  5. PASPERTIN [Concomitant]
     Route: 048
     Dates: start: 20071001
  6. LOVENOX [Concomitant]
     Route: 058
     Dates: start: 20071001
  7. PREDNISONE [Concomitant]
     Route: 065
     Dates: start: 20071001
  8. BLEOMYCIN [Concomitant]
     Route: 065
     Dates: start: 20071001
  9. ONCOVIN [Concomitant]
     Route: 065
     Dates: start: 20071001

REACTIONS (5)
  - BLISTER [None]
  - CHEST DISCOMFORT [None]
  - ERYTHEMA [None]
  - HYPERSENSITIVITY [None]
  - PRURITUS [None]
